FAERS Safety Report 9165215 (Version 1)
Quarter: 2013Q1

REPORT INFORMATION
  Report Type: Spontaneous
  Country: US (occurrence: None)
  Receive Date: 20130314
  Receipt Date: 20130314
  Transmission Date: 20140127
  Serious: No
  Sender: FDA-Public Use
  Company Number: None

PATIENT
  Sex: Female
  Weight: 77.11 kg

DRUGS (1)
  1. OXYCODONE [Suspect]
     Indication: PAIN
     Dosage: 10 MG EVERY 6HR AS NEEDED ORAL
     Route: 048
     Dates: start: 201010

REACTIONS (2)
  - Drug effect decreased [None]
  - Product substitution issue [None]
